FAERS Safety Report 15753059 (Version 1)
Quarter: 2018Q4

REPORT INFORMATION
  Report Type: Spontaneous
  Country: NL (occurrence: NL)
  Receive Date: 20181222
  Receipt Date: 20181222
  Transmission Date: 20190205
  Serious: Yes (Other)
  Sender: FDA-Public Use
  Company Number: NL-TEVA-2018-NL-989695

PATIENT
  Age: 72 Year
  Sex: Male

DRUGS (4)
  1. OMEPRAZOL 20MG GASTRO-RESISTANT HARD CAPSULES (OMEPRAZOLE SODIUM) [Suspect]
     Active Substance: OMEPRAZOLE SODIUM
     Indication: PROPHYLAXIS AGAINST GASTROINTESTINAL ULCER
     Dosage: 20 MILLIGRAM DAILY; 1DD1
     Route: 065
     Dates: start: 2016, end: 20170115
  2. ASCAL [Concomitant]
  3. PRAVASTATINE [Concomitant]
     Active Substance: PRAVASTATIN
     Dates: end: 201708
  4. GEMFIBROZIL. [Concomitant]
     Active Substance: GEMFIBROZIL
     Dates: end: 201701

REACTIONS (1)
  - Renal impairment [Recovered/Resolved]

NARRATIVE: CASE EVENT DATE: 20161024
